FAERS Safety Report 8510329-3 (Version None)
Quarter: 2012Q3

REPORT INFORMATION
  Report Type: 
  Country: None (occurrence: None)
  Receive Date: 20120713
  Receipt Date: 20120703
  Transmission Date: 20120928
  Serious: Yes (Other)
  Sender: FDA-Public Use
  Company Number: CA-FRI-1000037014

PATIENT
  Age: 20 Year
  Sex: Female

DRUGS (2)
  1. MYDRIACYL [Suspect]
  2. CELEXA [Suspect]
     Dosage: 20 MG
     Route: 048

REACTIONS (5)
  - GRAND MAL CONVULSION [None]
  - LOSS OF CONSCIOUSNESS [None]
  - MEMORY IMPAIRMENT [None]
  - CONVULSION [None]
  - DRUG INTERACTION [None]
